FAERS Safety Report 7292979-8 (Version None)
Quarter: 2011Q1

REPORT INFORMATION
  Report Type: 
  Country: None (occurrence: None)
  Receive Date: 20110215
  Receipt Date: 20110113
  Transmission Date: 20110831
  Serious: Yes (Death, Life-Threatening, Hospitalization)
  Sender: FDA-Public Use
  Company Number: US-ROCHE-708591

PATIENT
  Sex: Male

DRUGS (7)
  1. DOCETAXEL [Suspect]
     Dosage: CYCLE 2. DAY 01, OVER 1 HOUR
     Route: 042
     Dates: start: 20100419
  2. CARBOPLATIN [Suspect]
     Indication: HEAD AND NECK CANCER
     Dosage: CYCLE 3 SWITCHED FROM CISPLATIN
     Route: 042
     Dates: start: 20100517
  3. BEVACIZUMAB [Suspect]
     Indication: HEAD AND NECK CANCER
     Dosage: DAY 01, OVER 30-90 MINUTE, CYCLE: 21 DAYS
     Route: 042
     Dates: start: 20100325
  4. BEVACIZUMAB [Suspect]
     Dosage: CYCLE 2 DAY 01, OVER 30-90 MINUTE, CYCLE: 21 DAYS
     Route: 042
     Dates: start: 20100419
  5. DOCETAXEL [Suspect]
     Indication: HEAD AND NECK CANCER
     Dosage: DAY 01, OVER 1 HOUR
     Route: 042
     Dates: start: 20100325
  6. CISPLATIN [Suspect]
     Dosage: CYCLE 2 DAY 01, OVER 1-2 HOURS
     Route: 042
     Dates: start: 20100419
  7. CISPLATIN [Suspect]
     Indication: HEAD AND NECK CANCER
     Dosage: DAY 01, OVER 1-2 HOURS
     Route: 042
     Dates: start: 20100325

REACTIONS (9)
  - LARGE INTESTINE PERFORATION [None]
  - DEHYDRATION [None]
  - ATRIAL FIBRILLATION [None]
  - ABDOMINAL INFECTION [None]
  - CARDIO-RESPIRATORY ARREST [None]
  - SMALL INTESTINAL OBSTRUCTION [None]
  - VOMITING [None]
  - DISEASE PROGRESSION [None]
  - CEREBRAL ISCHAEMIA [None]
